FAERS Safety Report 8517779-X (Version None)
Quarter: 2012Q3

REPORT INFORMATION
  Report Type: 
  Country: None (occurrence: None)
  Receive Date: 20120712
  Receipt Date: 20120712
  Transmission Date: 20120928
  Serious: Yes (Life-Threatening, Hospitalization, Other)
  Sender: FDA-Public Use
  Company Number: None

PATIENT
  Age: 34 Year
  Sex: Female
  Weight: 108.8633 kg

DRUGS (1)
  1. JANUVIA [Suspect]
     Indication: TYPE 2 DIABETES MELLITUS
     Dosage: 100 MG ONCE PER DAY

REACTIONS (10)
  - HYPERTENSION [None]
  - ABDOMINAL PAIN [None]
  - VOMITING [None]
  - PANCREATITIS ACUTE [None]
  - GENERAL PHYSICAL HEALTH DETERIORATION [None]
  - CHOLECYSTECTOMY [None]
  - NAUSEA [None]
  - CARDIAC ARREST [None]
  - RESPIRATORY RATE INCREASED [None]
  - UNEVALUABLE EVENT [None]
